FAERS Safety Report 7982504-8 (Version None)
Quarter: 2011Q4

REPORT INFORMATION
  Report Type: 
  Country: None (occurrence: None)
  Receive Date: 20111215
  Receipt Date: 20111021
  Transmission Date: 20120403
  Serious: Yes (Hospitalization)
  Sender: FDA-Public Use
  Company Number: US-ROCHE-1022021

PATIENT
  Sex: Female
  Weight: 65.83 kg

DRUGS (11)
  1. DULERA ORAL INHALATION [Concomitant]
  2. PREDNISONE TAB [Concomitant]
  3. SINGULAIR [Concomitant]
  4. DILTIAZEM HCL [Concomitant]
  5. ZOLOFT [Concomitant]
  6. LORAZEPAM [Concomitant]
  7. OMALIZUMAB [Suspect]
     Indication: ASTHMA
     Dosage: 2 INJECTIONS EVERY 2 WEEKS
     Route: 058
     Dates: end: 20111201
  8. SPIRIVA [Concomitant]
  9. ZOCOR [Concomitant]
  10. IPRATROPIUM BROMIDE [Concomitant]
  11. ALBUTEROL [Concomitant]

REACTIONS (1)
  - ASTHMA [None]
